FAERS Safety Report 5061027-2 (Version None)
Quarter: 2006Q3

REPORT INFORMATION
  Report Type: 
  Country: None (occurrence: None)
  Receive Date: 20060725
  Receipt Date: 20060706
  Transmission Date: 20061208
  Serious: Yes (Hospitalization)
  Sender: FDA-Public Use
  Company Number: CH-ROCHE-454240

PATIENT
  Age: 70 Year
  Sex: Female

DRUGS (12)
  1. CAPECITABINE [Suspect]
     Indication: BILIARY CANCER METASTATIC
     Route: 048
     Dates: start: 20060621, end: 20060623
  2. CAPECITABINE [Suspect]
     Dosage: FOR 14 DAYS.
     Route: 048
     Dates: start: 20060626, end: 20060714
  3. CAPECITABINE [Suspect]
     Dosage: FOR FOURTEEN DAYS.
     Route: 048
     Dates: start: 20060716
  4. GEMCITABINE [Suspect]
     Indication: BILIARY CANCER METASTATIC
     Route: 042
     Dates: start: 20060621
  5. NEXIUM [Concomitant]
     Route: 048
     Dates: start: 20060628
  6. DUPHALAC [Concomitant]
     Route: 048
  7. TEMESTA [Concomitant]
     Route: 048
     Dates: start: 20060628
  8. TRAMADOL HCL [Concomitant]
     Route: 048
     Dates: start: 20060628
  9. METOCLOPRAMIDE [Concomitant]
     Route: 048
     Dates: start: 20060628
  10. TRANSIPEG [Concomitant]
     Route: 048
     Dates: start: 20060628
  11. TRAMADOL HCL [Concomitant]
     Dosage: AS REQUIRED.
     Route: 048
     Dates: start: 20060628
  12. TRAMADOL HCL [Concomitant]
     Route: 048
     Dates: start: 20060628

REACTIONS (2)
  - CHOLANGITIS [None]
  - HYPONATRAEMIA [None]
